FAERS Safety Report 7976904-X (Version None)
Quarter: 2011Q4

REPORT INFORMATION
  Report Type: 
  Country: None (occurrence: None)
  Receive Date: 20111213
  Receipt Date: 20111110
  Transmission Date: 20120403
  Serious: No
  Sender: FDA-Public Use
  Company Number: US-AMGEN-USASP2011059105

PATIENT
  Age: 31 Year
  Sex: Male

DRUGS (2)
  1. ENBREL [Suspect]
     Indication: PSORIASIS
  2. ENBREL [Suspect]
     Indication: PSORIATIC ARTHROPATHY
     Dosage: 50 MG, 2 TIMES/WK
     Dates: start: 20110825, end: 20111002

REACTIONS (4)
  - RENAL PAIN [None]
  - PSORIATIC ARTHROPATHY [None]
  - BACK PAIN [None]
  - PSORIASIS [None]
